FAERS Safety Report 4612301-2 (Version None)
Quarter: 2005Q2

REPORT INFORMATION
  Report Type: 
  Country: None (occurrence: None)
  Receive Date: 20050308
  Receipt Date: 20050117
  Transmission Date: 20051028
  Serious: Yes (Hospitalization)
  Sender: FDA-Public Use
  Company Number: 2005UW01188

PATIENT
  Sex: Female

DRUGS (12)
  1. CRESTOR [Suspect]
  2. LANTUS [Suspect]
  3. GLUCOTROL XL [Suspect]
  4. METFORMIN [Suspect]
  5. LOTENSIN HCT [Suspect]
     Dosage: 10/125
  6. PLAVIX [Suspect]
  7. CELEBREX [Suspect]
  8. ECOTRIN [Suspect]
  9. ISOSORBIDE [Suspect]
  10. NEURONTIN [Suspect]
  11. SSRI [Suspect]
  12. PROTONIX [Concomitant]

REACTIONS (2)
  - CHEST PAIN [None]
  - DIZZINESS [None]
